FAERS Safety Report 13802903 (Version 1)
Quarter: 2017Q3

REPORT INFORMATION
  Report Type: Spontaneous
  Country: US (occurrence: US)
  Receive Date: 20170728
  Receipt Date: 20170728
  Transmission Date: 20171127
  Serious: No
  Sender: FDA-Public Use
  Company Number: US-PERRIGO-17US002297

PATIENT

DRUGS (1)
  1. MINOXIDIL. [Suspect]
     Active Substance: MINOXIDIL
     Indication: PRODUCT USED FOR UNKNOWN INDICATION
     Dosage: UNK, NIGHTLY
     Route: 061
     Dates: start: 201703

REACTIONS (2)
  - Inappropriate schedule of drug administration [Unknown]
  - Application site irritation [Unknown]

NARRATIVE: CASE EVENT DATE: 201703
